FAERS Safety Report 21485447 (Version 1)
Quarter: 2022Q4

REPORT INFORMATION
  Report Type: Spontaneous
  Country: US (occurrence: US)
  Receive Date: 20221020
  Receipt Date: 20221020
  Transmission Date: 20230112
  Serious: No
  Sender: FDA-Public Use
  Company Number: US-PFIZER INC-202201236844

PATIENT

DRUGS (1)
  1. CUPRIC CHLORIDE [Suspect]
     Active Substance: CUPRIC CHLORIDE
     Indication: Copper deficiency
     Dosage: UNK

REACTIONS (1)
  - Oedema peripheral [Not Recovered/Not Resolved]
